FAERS Safety Report 5963168-1 (Version None)
Quarter: 2008Q4

REPORT INFORMATION
  Report Type: 
  Country: None (occurrence: None)
  Receive Date: 20081119
  Receipt Date: 20080723
  Transmission Date: 20090506
  Serious: No
  Sender: FDA-Public Use
  Company Number: WAES 0806USA03421

PATIENT
  Age: 66 Year
  Sex: Female

DRUGS (7)
  1. JANUVIA [Suspect]
     Indication: DIABETES MELLITUS
     Dosage: 100 MG/DAILY/PO
     Route: 047
     Dates: start: 20071224, end: 20080605
  2. LEVAQUIN [Concomitant]
  3. VERAPAMIL EXTENDED-RELEASE [Concomitant]
  4. AMLODIPINE BESYLATE [Concomitant]
  5. ANTINEOPLASTIC (UNSPECIFIED) [Concomitant]
  6. ATENOLOL [Concomitant]
  7. LISINOPRIL [Concomitant]

REACTIONS (1)
  - JAUNDICE [None]
